FAERS Safety Report 25040233 (Version 2)
Quarter: 2025Q3

REPORT INFORMATION
  Report Type: Spontaneous
  Country: AU (occurrence: AU)
  Receive Date: 20250305
  Receipt Date: 20250809
  Transmission Date: 20251021
  Serious: Yes (Other)
  Sender: ALEXION PHARMACEUTICALS
  Company Number: AU-MEN-112086(0)

PATIENT
  Sex: Female

DRUGS (1)
  1. ROSUVASTATIN [Suspect]
     Active Substance: ROSUVASTATIN

REACTIONS (4)
  - Acute kidney injury [Not Recovered/Not Resolved]
  - Product dispensing error [Unknown]
  - Incorrect dosage administered [Unknown]
  - Rhabdomyolysis [Not Recovered/Not Resolved]
